FAERS Safety Report 19236040 (Version 2)
Quarter: 2021Q2

REPORT INFORMATION
  Report Type: Report from Study
  Country: US (occurrence: US)
  Receive Date: 20210510
  Receipt Date: 20210609
  Transmission Date: 20210717
  Serious: Yes (Hospitalization, Other)
  Sender: FDA-Public Use
  Company Number: US-BRISTOL-MYERS SQUIBB COMPANY-BMS-2021-043597

PATIENT
  Sex: Male
  Weight: 92.8 kg

DRUGS (3)
  1. PACLITAXEL. [Suspect]
     Active Substance: PACLITAXEL
     Indication: ANAL CANCER
     Dosage: 177 MILLIGRAM
     Route: 065
     Dates: start: 20210309, end: 20210406
  2. NIVOLUMAB [Suspect]
     Active Substance: NIVOLUMAB
     Indication: ANAL CANCER
     Dosage: 480 MILLIGRAM
     Route: 065
     Dates: start: 20210309, end: 20210406
  3. CARBOPLATIN. [Suspect]
     Active Substance: CARBOPLATIN
     Indication: ANAL CANCER
     Dosage: 634.5 MILLIGRAM
     Route: 065
     Dates: start: 20210309, end: 20210406

REACTIONS (5)
  - COVID-19 [Recovered/Resolved]
  - Acidosis [Unknown]
  - Neutrophil count decreased [Unknown]
  - Diabetic ketoacidosis [Recovered/Resolved]
  - Hyperglycaemia [Unknown]

NARRATIVE: CASE EVENT DATE: 20210417
